FAERS Safety Report 10021257 (Version 1)
Quarter: 2014Q1

REPORT INFORMATION
  Report Type: Spontaneous
  Country: DE (occurrence: None)
  Receive Date: 20140313
  Receipt Date: 20140313
  Transmission Date: 20141002
  Serious: Yes (Life-Threatening, Hospitalization, Other)
  Sender: FDA-Public Use
  Company Number: AUR-APL-2014-02384

PATIENT
  Age: 54 Year
  Sex: Female
  Weight: 90 kg

DRUGS (3)
  1. CEFUROXIME (CEFUROXIME) [Suspect]
     Indication: ATYPICAL PNEUMONIA
     Dosage: 2 DOSAGE FORMS (1 DOSAGE FORMS, 2 IN 1 D), UNKNOWN
  2. DOXYCYCLIN (DOXYCYCLINE) [Suspect]
     Indication: ATYPICAL PNEUMONIA
  3. CAPRELSA (VANDETANIB) [Suspect]
     Indication: NEOPLASM MALIGNANT

REACTIONS (1)
  - Pancreatitis [None]
